FAERS Safety Report 4462406-4 (Version None)
Quarter: 2004Q3

REPORT INFORMATION
  Report Type: 
  Country: None (occurrence: None)
  Receive Date: 20040928
  Receipt Date: 20040914
  Transmission Date: 20050211
  Serious: Yes (Life-Threatening, Hospitalization)
  Sender: FDA-Public Use
  Company Number: STA-AE-04-MTX-410

PATIENT
  Age: 71 Year
  Sex: Female

DRUGS (9)
  1. RHEUMATREX [Suspect]
     Indication: RHEUMATOID ARTHRITIS
     Dosage: 6 MG 1X PER 1 WK, ORAL
     Route: 048
     Dates: start: 20010901, end: 20040807
  2. LOXONIN (LOXOPROFEN SODIUM) [Concomitant]
  3. VOLTAREN [Concomitant]
  4. MARZULENE S (LEVOGLUTAMIDE/SODIUM GUALENATE) [Concomitant]
  5. SELBEX (TEPRENONE) [Concomitant]
  6. URALYT (ARNICA EXTRACT/CONVALLARIA GLYCOSIDES/ECHINACEA ANGUSTIFOLIA/E [Concomitant]
  7. INDOMETHINE (INDOMETACIN) [Concomitant]
  8. INHIBACE ^ANDRUE^ (CILAZAPRIL) [Concomitant]
  9. ADALAT R (NIFEDIPINE) [Concomitant]

REACTIONS (7)
  - BONE MARROW DEPRESSION [None]
  - CHEST PAIN [None]
  - DISSEMINATED INTRAVASCULAR COAGULATION [None]
  - LIVER DISORDER [None]
  - LOBAR PNEUMONIA [None]
  - PANCYTOPENIA [None]
  - RENAL DISORDER [None]
